FAERS Safety Report 10300354 (Version 2)
Quarter: 2014Q3

REPORT INFORMATION
  Report Type: Spontaneous
  Country: US (occurrence: US)
  Receive Date: 20140712
  Receipt Date: 20140716
  Transmission Date: 20150326
  Serious: No
  Sender: FDA-Public Use
  Company Number: US-009507513-1407USA004636

PATIENT
  Age: 56 Year
  Sex: Female

DRUGS (2)
  1. NASONEX [Suspect]
     Active Substance: MOMETASONE FUROATE
     Dosage: 50 MCG/ ^2 SPRAYS IN EACH NOSTRIL DAILY IN THE MORNING
     Route: 045
     Dates: start: 20140701
  2. NASONEX [Suspect]
     Active Substance: MOMETASONE FUROATE
     Dosage: 50 MCG/ ^2 SPRAYS IN EACH NOSTRIL DAILY IN THE MORNING
     Route: 045
     Dates: start: 20140507, end: 20140617

REACTIONS (7)
  - Product container issue [Unknown]
  - No adverse event [Unknown]
  - Accidental exposure to product [Unknown]
  - Accidental exposure to product [Unknown]
  - Incorrect dose administered [Unknown]
  - Product container issue [Unknown]
  - Incorrect dose administered [Unknown]

NARRATIVE: CASE EVENT DATE: 201407
